FAERS Safety Report 4932687-9 (Version None)
Quarter: 2006Q1

REPORT INFORMATION
  Report Type: 
  Country: None (occurrence: None)
  Receive Date: 20060301
  Receipt Date: 20060220
  Transmission Date: 20060701
  Serious: Yes (Other)
  Sender: FDA-Public Use
  Company Number: 2006019792

PATIENT
  Age: 68 Year
  Sex: Female

DRUGS (2)
  1. XALATAN [Suspect]
     Indication: GLAUCOMA
     Dates: end: 20050901
  2. HYDROXYCHLOROQUINE (HYDROXYCHLOROQUINE) [Concomitant]

REACTIONS (5)
  - GRAFT COMPLICATION [None]
  - MALIGNANT MELANOMA [None]
  - SCAR [None]
  - SKIN GRAFT [None]
  - SKIN HYPERPIGMENTATION [None]
